FAERS Safety Report 15988329 (Version 2)
Quarter: 2019Q1

REPORT INFORMATION
  Report Type: Report from Study
  Country: CA (occurrence: CA)
  Receive Date: 20190221
  Receipt Date: 20190329
  Transmission Date: 20190418
  Serious: Yes (Other)
  Sender: FDA-Public Use
  Company Number: CA-ROCHE-2170248

PATIENT
  Age: 49 Year
  Sex: Female

DRUGS (3)
  1. VITAMIN B12 [Concomitant]
     Active Substance: CYANOCOBALAMIN
  2. ADVIL [Concomitant]
     Active Substance: IBUPROFEN
     Indication: PAIN
  3. OCREVUS [Suspect]
     Active Substance: OCRELIZUMAB
     Indication: PRIMARY PROGRESSIVE MULTIPLE SCLEROSIS
     Dosage: 300MG ON DAY 0 AND DAY 14, THEN 600MG EVERY 6 MONTHS
     Route: 042
     Dates: start: 20180208

REACTIONS (5)
  - Muscle spasms [Not Recovered/Not Resolved]
  - Fatigue [Not Recovered/Not Resolved]
  - Vertigo [Not Recovered/Not Resolved]
  - Muscular weakness [Not Recovered/Not Resolved]
  - Labyrinthitis [Unknown]

NARRATIVE: CASE EVENT DATE: 20180808
